FAERS Safety Report 20080941 (Version 1)
Quarter: 2021Q4

REPORT INFORMATION
  Report Type: Spontaneous
  Country: US (occurrence: US)
  Receive Date: 20211117
  Receipt Date: 20211117
  Transmission Date: 20220303
  Serious: Yes (Life-Threatening, Hospitalization)
  Sender: FDA-Public Use
  Company Number: US-MYLANLABS-2021M1084775

PATIENT
  Age: 29 Year
  Sex: Female

DRUGS (3)
  1. BACLOFEN [Suspect]
     Active Substance: BACLOFEN
     Indication: Muscle spasms
     Dosage: 20 MILLIGRAM, TID
     Route: 065
  2. NALOXONE [Suspect]
     Active Substance: NALOXONE
     Indication: Neurotoxicity
     Dosage: UNK
     Route: 065
  3. FLUMAZENIL [Suspect]
     Active Substance: FLUMAZENIL
     Indication: Neurotoxicity
     Dosage: UNK
     Route: 065

REACTIONS (7)
  - Coma [Recovered/Resolved]
  - Maternal exposure during pregnancy [Recovered/Resolved]
  - Neurotoxicity [Recovered/Resolved]
  - Depressed level of consciousness [Recovered/Resolved]
  - Encephalopathy [Recovered/Resolved]
  - Drug ineffective [Unknown]
  - Normal newborn [Recovered/Resolved]
